FAERS Safety Report 8327425-6 (Version None)
Quarter: 2012Q2

REPORT INFORMATION
  Report Type: 
  Country: None (occurrence: None)
  Receive Date: 20120424
  Receipt Date: 20120411
  Transmission Date: 20120825
  Serious: Yes (Hospitalization)
  Sender: FDA-Public Use
  Company Number: 2011PROUSA00868

PATIENT
  Age: 66 Year
  Sex: Male
  Weight: 93.4 kg

DRUGS (8)
  1. ALBUTEROL [Concomitant]
  2. SPIRIVA [Concomitant]
  3. PROVENGE [Suspect]
     Indication: PROSTATE CANCER METASTATIC
     Dosage: 250 ML, SINGLE, INTRAVENOUS
     Route: 042
     Dates: start: 20111117, end: 20111117
  4. PROVENGE [Suspect]
     Indication: PROSTATE CANCER METASTATIC
     Dosage: 250 ML, SINGLE, INTRAVENOUS
     Route: 042
     Dates: start: 20111201, end: 20111201
  5. SYNTHROID [Concomitant]
  6. SYMBICORT [Concomitant]
  7. PROVENGE [Suspect]
  8. COUMADIN [Concomitant]

REACTIONS (1)
  - STAPHYLOCOCCAL BACTERAEMIA [None]
